FAERS Safety Report 4571155-3 (Version None)
Quarter: 2005Q1

REPORT INFORMATION
  Report Type: 
  Country: None (occurrence: None)
  Receive Date: 20050202
  Receipt Date: 20050119
  Transmission Date: 20050727
  Serious: Yes (Other)
  Sender: FDA-Public Use
  Company Number: GBS050116432

PATIENT
  Age: 52 Year
  Sex: Male

DRUGS (4)
  1. ATOMOXETINE HYDROCHLORIDE [Suspect]
     Indication: ATTENTION DEFICIT/HYPERACTIVITY DISORDER
     Dates: start: 20041001
  2. ACETAMINOPHEN [Concomitant]
  3. VALPROATE SODIUM [Concomitant]
  4. LANSOPRAZOLE [Concomitant]

REACTIONS (1)
  - BENIGN PROSTATIC HYPERPLASIA [None]
